FAERS Safety Report 12124314 (Version 1)
Quarter: 2016Q1

REPORT INFORMATION
  Report Type: Spontaneous
  Country: CH (occurrence: CH)
  Receive Date: 20160229
  Receipt Date: 20160229
  Transmission Date: 20160526
  Serious: Yes (Other)
  Sender: FDA-Public Use
  Company Number: CH-ROCHE-1713494

PATIENT
  Age: 0 Day
  Sex: Male
  Weight: 2.9 kg

DRUGS (4)
  1. SUBUTEX [Suspect]
     Active Substance: BUPRENORPHINE HYDROCHLORIDE
     Indication: PRODUCT USED FOR UNKNOWN INDICATION
     Route: 063
  2. RIVOTRIL [Suspect]
     Active Substance: CLONAZEPAM
     Indication: PRODUCT USED FOR UNKNOWN INDICATION
     Route: 063
  3. RIVOTRIL [Suspect]
     Active Substance: CLONAZEPAM
     Route: 064
  4. SUBUTEX [Suspect]
     Active Substance: BUPRENORPHINE HYDROCHLORIDE
     Route: 064

REACTIONS (5)
  - Foetal exposure during pregnancy [Unknown]
  - Neonatal behavioural syndrome [Recovering/Resolving]
  - Exposure during breast feeding [Unknown]
  - Hypertonia [Recovering/Resolving]
  - Irritability [Recovering/Resolving]

NARRATIVE: CASE EVENT DATE: 20151209
